FAERS Safety Report 11388659 (Version 1)
Quarter: 2015Q3

REPORT INFORMATION
  Report Type: Spontaneous
  Country: SE (occurrence: SE)
  Receive Date: 20150817
  Receipt Date: 20150817
  Transmission Date: 20151125
  Serious: Yes (Hospitalization)
  Sender: FDA-Public Use
  Company Number: SE-PFIZER INC-2015191594

PATIENT
  Age: 68 Year
  Sex: Female

DRUGS (5)
  1. NITRAZEPAM [Concomitant]
     Active Substance: NITRAZEPAM
     Indication: INSOMNIA
     Dosage: 1 TABLET AT NIGHT
  2. DOLCONTIN [Suspect]
     Active Substance: MORPHINE
     Indication: SKELETAL INJURY
     Dosage: 30 MG, 2X/DAY
     Dates: start: 201506, end: 201506
  3. LEVAXIN [Concomitant]
     Active Substance: LEVOTHYROXINE SODIUM
     Dosage: UNK
  4. IMDUR [Concomitant]
     Active Substance: ISOSORBIDE MONONITRATE
     Dosage: UNK
  5. CITALOPRAM [Concomitant]
     Active Substance: CITALOPRAM HYDROBROMIDE
     Dosage: UNK

REACTIONS (5)
  - Swelling face [Recovered/Resolved]
  - Constipation [Recovered/Resolved]
  - Nasal congestion [Recovered/Resolved]
  - Erythema [Recovered/Resolved]
  - Rash [Recovered/Resolved]

NARRATIVE: CASE EVENT DATE: 201506
